FAERS Safety Report 9548881 (Version 1)
Quarter: 2013Q2

REPORT INFORMATION
  Report Type: Spontaneous
  Country: US (occurrence: None)
  Receive Date: 20130627
  Receipt Date: 20130627
  Transmission Date: 20140414
  Serious: No
  Sender: FDA-Public Use
  Company Number: CABO-13002762

PATIENT
  Age: 25 Year
  Sex: Male

DRUGS (1)
  1. COMETRIQ (CABOZANTINIB) CAPSULE [Suspect]
     Indication: THYROID CANCER
     Route: 048
     Dates: start: 20130423

REACTIONS (4)
  - Paraesthesia [None]
  - Dizziness [None]
  - Abdominal discomfort [None]
  - Surgery [None]
